FAERS Safety Report 14741953 (Version 2)
Quarter: 2018Q2

REPORT INFORMATION
  Report Type: Spontaneous
  Country: FR (occurrence: FR)
  Receive Date: 20180410
  Receipt Date: 20180612
  Transmission Date: 20180711
  Serious: Yes (Hospitalization)
  Sender: FDA-Public Use
  Company Number: FR-ROCHE-2083767

PATIENT
  Age: 47 Year
  Sex: Male

DRUGS (14)
  1. ACYCLOVIR. [Suspect]
     Active Substance: ACYCLOVIR
     Indication: HERPES ZOSTER
     Dosage: UNK
     Route: 042
     Dates: start: 20160707, end: 20160718
  2. TACROLIMUS. [Suspect]
     Active Substance: TACROLIMUS
     Indication: HEART TRANSPLANT
     Dosage: UNK
     Route: 065
  3. ANTILYMPHOCYTE IMMUNOGLOBULIN [Suspect]
     Active Substance: THYMOCYTE IMMUNE GLOBULIN NOS
     Indication: PROPHYLAXIS AGAINST TRANSPLANT REJECTION
     Route: 065
  4. MYCOPHENOLATE MOFETIL. [Suspect]
     Active Substance: MYCOPHENOLATE MOFETIL
     Indication: PROPHYLAXIS AGAINST TRANSPLANT REJECTION
     Route: 065
  5. TACROLIMUS. [Suspect]
     Active Substance: TACROLIMUS
     Indication: IMMUNOSUPPRESSANT DRUG THERAPY
  6. VALACICLOVIR [Suspect]
     Active Substance: VALACYCLOVIR HYDROCHLORIDE
     Indication: VARICELLA ZOSTER VIRUS INFECTION
     Dosage: 500 MG, BID
     Route: 065
     Dates: start: 2015, end: 2016
  7. VALACICLOVIR [Suspect]
     Active Substance: VALACYCLOVIR HYDROCHLORIDE
     Indication: ANTIVIRAL PROPHYLAXIS
     Route: 065
     Dates: start: 2016
  8. TACROLIMUS. [Suspect]
     Active Substance: TACROLIMUS
     Indication: PROPHYLAXIS AGAINST TRANSPLANT REJECTION
     Route: 065
  9. MYCOPHENOLATE MOFETIL. [Suspect]
     Active Substance: MYCOPHENOLATE MOFETIL
     Indication: IMMUNOSUPPRESSANT DRUG THERAPY
  10. VALACICLOVIR [Suspect]
     Active Substance: VALACYCLOVIR HYDROCHLORIDE
     Indication: ANTIVIRAL PROPHYLAXIS
     Route: 065
     Dates: start: 2015, end: 2016
  11. VALACICLOVIR [Concomitant]
     Active Substance: VALACYCLOVIR HYDROCHLORIDE
     Indication: ANTIVIRAL PROPHYLAXIS
     Route: 065
     Dates: start: 201504, end: 20160427
  12. ACYCLOVIR. [Suspect]
     Active Substance: ACYCLOVIR
     Indication: VARICELLA ZOSTER VIRUS INFECTION
     Route: 042
  13. VALACICLOVIR [Suspect]
     Active Substance: VALACYCLOVIR HYDROCHLORIDE
     Indication: VARICELLA ZOSTER VIRUS INFECTION
     Dosage: 500 MG, BID
     Route: 065
     Dates: start: 2016, end: 20160610
  14. VALACICLOVIR [Concomitant]
     Active Substance: VALACYCLOVIR HYDROCHLORIDE
     Indication: PROPHYLAXIS
     Route: 065
     Dates: start: 201504

REACTIONS (10)
  - Sepsis [Recovering/Resolving]
  - Renal failure [Unknown]
  - Drug resistance [Unknown]
  - Bronchopulmonary aspergillosis [Recovering/Resolving]
  - Varicella zoster virus infection [Recovered/Resolved]
  - Herpes zoster [Recovered/Resolved]
  - Herpes zoster [Recovered/Resolved]
  - Complications of transplanted heart [Recovered/Resolved]
  - Pneumonia klebsiella [Recovering/Resolving]
  - Infection reactivation [Recovered/Resolved]

NARRATIVE: CASE EVENT DATE: 2016
